FAERS Safety Report 8191544-8 (Version None)
Quarter: 2012Q1

REPORT INFORMATION
  Report Type: 
  Country: None (occurrence: None)
  Receive Date: 20120307
  Receipt Date: 20120229
  Transmission Date: 20120608
  Serious: Yes (Other)
  Sender: FDA-Public Use
  Company Number: US-ABBOTT-12P-163-0910273-00

PATIENT
  Age: 65 Year
  Sex: Male

DRUGS (3)
  1. BENTYL [Concomitant]
     Indication: PRODUCT USED FOR UNKNOWN INDICATION
  2. ANDROGEL [Suspect]
     Route: 061
     Dates: start: 20101201
  3. ANDROGEL [Suspect]
     Indication: BLOOD TESTOSTERONE DECREASED
     Route: 061
     Dates: end: 20100401

REACTIONS (2)
  - NEOPLASM MALIGNANT [None]
  - BLOOD CREATININE INCREASED [None]
